FAERS Safety Report 23120262 (Version 1)
Quarter: 2023Q4

REPORT INFORMATION
  Report Type: Spontaneous
  Country: US (occurrence: US)
  Receive Date: 20231029
  Receipt Date: 20231029
  Transmission Date: 20240110
  Serious: No
  Sender: FDA-Public Use
  Company Number: US-TEVA-2023-US-2938185

PATIENT
  Age: 9 Year
  Sex: Female

DRUGS (1)
  1. METHYLPHENIDATE [Suspect]
     Active Substance: METHYLPHENIDATE
     Indication: Product used for unknown indication
     Dosage: 36ER
     Route: 065

REACTIONS (4)
  - Headache [Unknown]
  - Thirst [Unknown]
  - Anxiety [Unknown]
  - Feeling jittery [Unknown]
